FAERS Safety Report 4478394-0 (Version None)
Quarter: 2004Q4

REPORT INFORMATION
  Report Type: 
  Country: None (occurrence: None)
  Receive Date: 20041019
  Receipt Date: 20041007
  Transmission Date: 20050328
  Serious: Yes (Death, Other)
  Sender: FDA-Public Use
  Company Number: JP-JNJFOC-20040905792

PATIENT
  Sex: Female

DRUGS (18)
  1. DUROTEP [Suspect]
     Route: 062
     Dates: start: 20040808, end: 20040921
  2. DUROTEP [Suspect]
     Indication: CANCER PAIN
     Route: 062
     Dates: start: 20040808, end: 20040921
  3. MAGNESIUM OXIDE [Concomitant]
     Indication: CONSTIPATION
     Route: 049
     Dates: start: 20040725
  4. DICLOFENAC SODIUM [Concomitant]
     Indication: CANCER PAIN
     Route: 054
     Dates: start: 20040728, end: 20040913
  5. TEGAFUR GIMESTAT OTASTAT POTASSIUM [Concomitant]
     Indication: RECTAL CANCER
     Route: 049
     Dates: start: 20040814, end: 20040828
  6. TEGAFUR GIMESTAT OTASTAT POTASSIUM [Concomitant]
     Route: 049
     Dates: start: 20040814, end: 20040828
  7. TEGAFUR GIMESTAT OTASTAT POTASSIUM [Concomitant]
     Route: 049
     Dates: start: 20040814, end: 20040828
  8. MORPHINE [Concomitant]
     Route: 049
     Dates: start: 20040904
  9. MORPHINE [Concomitant]
     Indication: CANCER PAIN
     Route: 049
     Dates: start: 20040904
  10. TRIAZOLAM [Concomitant]
     Indication: INSOMNIA
     Route: 049
     Dates: start: 20020408, end: 20040920
  11. URSODESOXYCHOLIC ACID [Concomitant]
     Indication: DRUG USE FOR UNKNOWN INDICATION
     Route: 049
  12. MECOBALAMIN [Concomitant]
     Route: 049
     Dates: start: 20020827, end: 20040920
  13. VOGLIBOSE [Concomitant]
     Indication: DIABETES MELLITUS
     Route: 049
     Dates: start: 20020408, end: 20040920
  14. RANITIDINE HYDROCHLORIDE [Concomitant]
     Indication: REFLUX OESOPHAGITIS
     Route: 049
     Dates: start: 20020408, end: 20040920
  15. EXTRACT FROM INFLAMMATORY RABBIT SKIN INOCULATED BY VACCINIA VIRUS [Concomitant]
     Route: 049
     Dates: start: 20031202, end: 20040920
  16. REBAMIPIDE [Concomitant]
     Indication: STOMACH DISCOMFORT
     Route: 049
     Dates: start: 20040114, end: 20040920
  17. HOCNU-EKKI-TO [Concomitant]
     Indication: ANOREXIA
     Route: 049
     Dates: start: 20040203, end: 20040920
  18. LOXOPROFEN SODIUM [Concomitant]
     Indication: PAIN
     Route: 049
     Dates: start: 20040609, end: 20040920

REACTIONS (8)
  - ASPARTATE AMINOTRANSFERASE INCREASED [None]
  - BLOOD CHOLINESTERASE DECREASED [None]
  - BLOOD LACTATE DEHYDROGENASE INCREASED [None]
  - PALPITATIONS [None]
  - PLATELET COUNT DECREASED [None]
  - RED BLOOD CELL COUNT DECREASED [None]
  - SOMNOLENCE [None]
  - WHITE BLOOD CELL COUNT INCREASED [None]
